FAERS Safety Report 21789730 (Version 1)
Quarter: 2022Q4

REPORT INFORMATION
  Report Type: Spontaneous
  Country: US (occurrence: None)
  Receive Date: 20221227
  Receipt Date: 20221227
  Transmission Date: 20230113
  Serious: No
  Sender: FDA-Public Use
  Company Number: None

PATIENT

DRUGS (2)
  1. ESOMEPRAZOLE SODIUM [Suspect]
     Active Substance: ESOMEPRAZOLE SODIUM
     Route: 048
  2. OMEPRAZOLE [Suspect]
     Active Substance: OMEPRAZOLE

REACTIONS (4)
  - Product dispensing error [None]
  - Wrong product administered [None]
  - Product name confusion [None]
  - Product name confusion [None]
